FAERS Safety Report 12897729 (Version 1)
Quarter: 2016Q4

REPORT INFORMATION
  Report Type: Spontaneous
  Country: US (occurrence: US)
  Receive Date: 20161031
  Receipt Date: 20161031
  Transmission Date: 20170207
  Serious: No
  Sender: FDA-Public Use
  Company Number: US-INCYTE CORPORATION-2016IN006393

PATIENT
  Age: 51 Year
  Sex: Male

DRUGS (1)
  1. JAKAFI [Suspect]
     Active Substance: RUXOLITINIB
     Dosage: UNK, (1 TABLET) QOD

REACTIONS (5)
  - Abnormal faeces [Unknown]
  - Dyspepsia [Unknown]
  - Headache [Unknown]
  - Respiratory tract congestion [Unknown]
  - Flatulence [Unknown]

NARRATIVE: CASE EVENT DATE: 201610
